FAERS Safety Report 9797751 (Version 2)
Quarter: 2014Q2

REPORT INFORMATION
  Report Type: Spontaneous
  Country: CA (occurrence: CA)
  Receive Date: 20140106
  Receipt Date: 20140407
  Transmission Date: 20141212
  Serious: Yes (Other)
  Sender: FDA-Public Use
  Company Number: CA-JNJFOC-20131214943

PATIENT
  Age: 32 Year
  Sex: Male
  Weight: 53.7 kg

DRUGS (25)
  1. ELMIRON [Suspect]
     Indication: CYSTITIS
     Route: 048
     Dates: start: 20130305, end: 20130325
  2. ELMIRON [Suspect]
     Indication: CYSTITIS
     Route: 048
     Dates: start: 20120711, end: 20130228
  3. ELMIRON [Suspect]
     Indication: CYSTITIS
     Route: 048
     Dates: start: 20130424, end: 20130527
  4. EMTRICITABINE W/TENOFOVIR DISOPROXIL FUMARATE [Suspect]
     Indication: PROSTATITIS
     Route: 048
     Dates: start: 20120315, end: 20130508
  5. EMTRICITABINE W/TENOFOVIR DISOPROXIL FUMARATE [Suspect]
     Indication: CYSTITIS ULCERATIVE
     Route: 048
     Dates: start: 20120315, end: 20130508
  6. EMTRICITABINE W/TENOFOVIR DISOPROXIL FUMARATE [Suspect]
     Indication: HIV INFECTION
     Route: 048
     Dates: start: 20120315, end: 20130508
  7. LOPINAVIR + RITONAVIR [Suspect]
     Indication: HIV INFECTION
     Route: 048
     Dates: start: 20120315
  8. TOVIAZ [Suspect]
     Indication: BLADDER DISORDER
     Route: 065
  9. TOVIAZ [Suspect]
     Indication: BLADDER DISORDER
     Route: 065
     Dates: start: 20121101, end: 20130115
  10. CYMBALTA [Suspect]
     Indication: CYSTITIS ULCERATIVE
     Route: 065
     Dates: start: 20121101, end: 20130325
  11. MARAVIROC [Suspect]
     Indication: HIV INFECTION
     Route: 048
     Dates: start: 20120315, end: 20130508
  12. DETROL LA [Suspect]
     Indication: PROSTATITIS
     Route: 048
     Dates: start: 20120516, end: 20120605
  13. DETROL LA [Suspect]
     Indication: PROSTATITIS
     Route: 048
     Dates: start: 20121105, end: 20130325
  14. RALTEGRAVIR [Suspect]
     Indication: HIV INFECTION
     Dosage: 1 DF, TWICE A DAY
     Route: 048
     Dates: start: 20120315, end: 20130508
  15. ENABLEX [Suspect]
     Indication: PROSTATITIS
     Route: 065
     Dates: start: 20121101, end: 20130201
  16. ENABLEX [Suspect]
     Indication: PROSTATITIS
     Route: 065
     Dates: start: 20120516, end: 20120605
  17. WELLBUTRIN [Concomitant]
     Indication: PRODUCT USED FOR UNKNOWN INDICATION
     Route: 065
     Dates: start: 20120225, end: 20130313
  18. FLUCLOXACILLIN SODIUM [Concomitant]
     Indication: PRODUCT USED FOR UNKNOWN INDICATION
     Route: 065
  19. GABAPENTIN [Concomitant]
     Indication: NOCTURIA
     Route: 065
     Dates: start: 20120830, end: 20121210
  20. GABAPENTIN [Concomitant]
     Indication: CYSTITIS INTERSTITIAL
     Route: 065
     Dates: start: 20120830, end: 20121210
  21. OXYCOCET [Concomitant]
     Indication: PAIN
     Route: 065
     Dates: start: 20120327
  22. OXYCOCET [Concomitant]
     Indication: FISTULA
     Route: 065
     Dates: start: 20120327
  23. ATIVAN [Concomitant]
     Indication: PRODUCT USED FOR UNKNOWN INDICATION
     Route: 065
     Dates: start: 20120225, end: 20130308
  24. FLOXIN [Concomitant]
     Route: 065
     Dates: start: 20120718, end: 20120808
  25. VITAMIN C AND D [Concomitant]
     Route: 065
     Dates: start: 20120225, end: 20121218

REACTIONS (2)
  - Neutropenia [Recovered/Resolved]
  - Neutropenia [Recovered/Resolved]
